FAERS Safety Report 9380318 (Version 1)
Quarter: 2013Q3

REPORT INFORMATION
  Report Type: Spontaneous
  Country: US (occurrence: US)
  Receive Date: 20130702
  Receipt Date: 20130702
  Transmission Date: 20140515
  Serious: Yes (Hospitalization)
  Sender: FDA-Public Use
  Company Number: US-GLAXOSMITHKLINE-A0869013A

PATIENT
  Age: 67 Year
  Sex: Male
  Weight: 102.7 kg

DRUGS (2)
  1. AVANDIA [Suspect]
     Indication: DIABETES MELLITUS
     Dosage: 4MG PER DAY
     Route: 048
     Dates: start: 2001, end: 2008
  2. AVANDAMET [Suspect]
     Indication: DIABETES MELLITUS
     Route: 048

REACTIONS (4)
  - Acute myocardial infarction [Unknown]
  - Cerebrovascular accident [Unknown]
  - Chronic lymphocytic leukaemia [Unknown]
  - Atrial fibrillation [Unknown]
